FAERS Safety Report 16121047 (Version 3)
Quarter: 2019Q2

REPORT INFORMATION
  Report Type: Spontaneous
  Country: US (occurrence: US)
  Receive Date: 20190327
  Receipt Date: 20190409
  Transmission Date: 20190711
  Serious: No
  Sender: FDA-Public Use
  Company Number: US-AMGEN-USASP2019047088

PATIENT
  Age: 58 Year
  Sex: Female

DRUGS (9)
  1. FOLIC ACID. [Concomitant]
     Active Substance: FOLIC ACID
     Dosage: 1 MILLIGRAM
  2. HUMALOG [Concomitant]
     Active Substance: INSULIN LISPRO
     Dosage: 75/25 MIX, UNK
  3. HYDROCHLOROTHIAZIDE. [Concomitant]
     Active Substance: HYDROCHLOROTHIAZIDE
     Dosage: 25 MILLIGRAM
  4. ENBREL [Suspect]
     Active Substance: ETANERCEPT
     Indication: RHEUMATOID ARTHRITIS
     Dosage: 50 MILLIGRAM, QWK
     Route: 065
     Dates: start: 2014
  5. FENOFIBRATE. [Concomitant]
     Active Substance: FENOFIBRATE
     Dosage: 145 MILLIGRAM
  6. ACTOS [Concomitant]
     Active Substance: PIOGLITAZONE HYDROCHLORIDE
     Dosage: ONE AND HALF PILL, UNK
  7. METHOTREXATE. [Concomitant]
     Active Substance: METHOTREXATE
     Indication: RHEUMATOID ARTHRITIS
     Dosage: 10 MILLIGRAM, QWK (2.5 MILLIGRAM, FOUR TABLETS ONCE WEEKLY)
  8. AZOR [ALPRAZOLAM] [Concomitant]
     Active Substance: ALPRAZOLAM
     Dosage: 5/40, MILLIGRAM
  9. XARELTO [Concomitant]
     Active Substance: RIVAROXABAN
     Dosage: 25 MILLIGRAM

REACTIONS (2)
  - Oropharyngeal discomfort [Not Recovered/Not Resolved]
  - Feeling abnormal [Not Recovered/Not Resolved]

NARRATIVE: CASE EVENT DATE: 20190322
